FAERS Safety Report 7432042-6 (Version None)
Quarter: 2011Q1

REPORT INFORMATION
  Report Type: 
  Country: None (occurrence: None)
  Receive Date: 20110302
  Receipt Date: 20101130
  Transmission Date: 20110831
  Serious: Yes (Other)
  Sender: FDA-Public Use
  Company Number: 020800

PATIENT
  Sex: Female
  Weight: 77 kg

DRUGS (3)
  1. CELEXA [Concomitant]
  2. CIMZIA [Suspect]
     Indication: CROHN'S DISEASE
     Dosage: 400 MG 1X/28 DAYS SUBCUTANEOUS
     Route: 058
     Dates: start: 20100228
  3. IMURAN [Concomitant]

REACTIONS (3)
  - FISTULA [None]
  - ABDOMINAL PAIN [None]
  - ABSCESS [None]
